FAERS Safety Report 5755649-0 (Version None)
Quarter: 2008Q2

REPORT INFORMATION
  Report Type: 
  Country: None (occurrence: None)
  Receive Date: 20080602
  Receipt Date: 20080521
  Transmission Date: 20081010
  Serious: Yes (Hospitalization, Other)
  Sender: FDA-Public Use
  Company Number: GR-ROCHE-566066

PATIENT
  Age: 61 Year
  Sex: Male

DRUGS (2)
  1. PEGASYS [Suspect]
     Indication: HEPATITIS C
     Dosage: FORM:INJECTABLE SOLUTION
     Route: 065
     Dates: start: 20080201, end: 20080501
  2. REBETOL [Concomitant]
     Indication: HEPATITIS C
     Dates: start: 20080201, end: 20080507

REACTIONS (5)
  - DIPLOPIA [None]
  - EYELID PTOSIS [None]
  - MUSCULAR WEAKNESS [None]
  - STRABISMUS [None]
  - VISUAL ACUITY REDUCED [None]
